FAERS Safety Report 9763210 (Version 1)
Quarter: 2013Q4

REPORT INFORMATION
  Report Type: Spontaneous
  Country: US (occurrence: US)
  Receive Date: 20131216
  Receipt Date: 20131216
  Transmission Date: 20140711
  Serious: No
  Sender: FDA-Public Use
  Company Number: US-BIOGENIDEC-2013BI107658

PATIENT
  Sex: Male

DRUGS (5)
  1. TECFIDERA [Suspect]
     Indication: PRODUCT USED FOR UNKNOWN INDICATION
  2. AMPYRA [Concomitant]
     Dates: start: 20130802
  3. LIPITOR [Concomitant]
  4. VESICARE [Concomitant]
  5. VITAMIN D [Concomitant]

REACTIONS (2)
  - Diarrhoea [Unknown]
  - Nausea [Recovered/Resolved]
